FAERS Safety Report 5252442-2 (Version None)
Quarter: 2007Q1

REPORT INFORMATION
  Report Type: 
  Country: None (occurrence: None)
  Receive Date: 20070301
  Receipt Date: 20061113
  Transmission Date: 20070707
  Serious: No
  Sender: FDA-Public Use
  Company Number: US-BRISTOL-MYERS SQUIBB COMPANY-13576178

PATIENT
  Age: 63 Year
  Sex: Female
  Weight: 75 kg

DRUGS (6)
  1. ERBITUX [Suspect]
     Indication: COLON CANCER
     Route: 042
     Dates: start: 20061024
  2. BENADRYL [Concomitant]
     Indication: PREMEDICATION
     Route: 042
  3. TYLENOL [Concomitant]
     Indication: PREMEDICATION
     Route: 048
  4. IRINOTECAN HCL [Concomitant]
  5. PROTONIX [Concomitant]
  6. LISINOPRIL [Concomitant]

REACTIONS (1)
  - BLEPHARITIS [None]
